FAERS Safety Report 8479296-5 (Version None)
Quarter: 2012Q2

REPORT INFORMATION
  Report Type: 
  Country: None (occurrence: None)
  Receive Date: 20120629
  Receipt Date: 20120410
  Transmission Date: 20120825
  Serious: Yes (Other)
  Sender: FDA-Public Use
  Company Number: SE-GLAXOSMITHKLINE-B0795277A

PATIENT
  Sex: Female
  Weight: 63 kg

DRUGS (5)
  1. VENTOLIN [Suspect]
     Indication: ASTHMA
     Route: 055
     Dates: start: 20120111
  2. FORMOTEROL FUMARATE [Suspect]
     Route: 065
  3. FUROSEMIDE [Suspect]
     Dosage: 20MG PER DAY
     Route: 065
  4. LEVOTHYROXINE SODIUM [Concomitant]
     Dosage: 25UG PER DAY
     Route: 065
  5. SPIRIVA [Suspect]
     Route: 065

REACTIONS (13)
  - SOMNOLENCE [None]
  - ANGINA PECTORIS [None]
  - DYSKINESIA [None]
  - PAIN IN EXTREMITY [None]
  - VOMITING [None]
  - RASH PRURITIC [None]
  - CONDITION AGGRAVATED [None]
  - MUSCLE SPASMS [None]
  - MALAISE [None]
  - PALPITATIONS [None]
  - MUSCLE TWITCHING [None]
  - BACK PAIN [None]
  - DRUG INTERACTION [None]
